FAERS Safety Report 15412827 (Version 1)
Quarter: 2018Q3

REPORT INFORMATION
  Report Type: Not Available
  Country: US (occurrence: US)
  Receive Date: 20180921
  Receipt Date: 20180921
  Transmission Date: 20181010
  Serious: Yes (Hospitalization)
  Sender: FDA-Public Use
  Company Number: US-NEUROCRINE BIOSCIENCES INC.-2018NBI02796

PATIENT
  Sex: Male

DRUGS (11)
  1. INGREZZA [Suspect]
     Active Substance: VALBENAZINE
     Route: 048
     Dates: start: 20170623
  2. DILTIAZEM CD [Concomitant]
     Active Substance: DILTIAZEM
  3. INGREZZA [Suspect]
     Active Substance: VALBENAZINE
     Indication: PRODUCT USED FOR UNKNOWN INDICATION
     Route: 048
     Dates: start: 20170615, end: 20170622
  4. METFORMIN HYDROCHLORIDE ER [Concomitant]
     Active Substance: METFORMIN HYDROCHLORIDE
  5. TRAZODONE [Concomitant]
     Active Substance: TRAZODONE HYDROCHLORIDE
  6. AMBIEN [Concomitant]
     Active Substance: ZOLPIDEM TARTRATE
  7. COGENTIN [Concomitant]
     Active Substance: BENZTROPINE MESYLATE
  8. DEPAKOTE [Concomitant]
     Active Substance: DIVALPROEX SODIUM
  9. LEXAPRO [Concomitant]
     Active Substance: ESCITALOPRAM OXALATE
  10. SEROQUEL [Concomitant]
     Active Substance: QUETIAPINE FUMARATE
  11. NEURONTIN [Concomitant]
     Active Substance: GABAPENTIN

REACTIONS (3)
  - Foot fracture [Unknown]
  - Dizziness [Unknown]
  - Fall [Unknown]
